FAERS Safety Report 25327612 (Version 2)
Quarter: 2025Q2

REPORT INFORMATION
  Report Type: Spontaneous
  Country: US (occurrence: US)
  Receive Date: 20250517
  Receipt Date: 20250525
  Transmission Date: 20250716
  Serious: No
  Sender: SANOFI AVENTIS
  Company Number: US-SA-2025SA139880

PATIENT
  Age: 92 Year
  Sex: Male
  Weight: 72.73 kg

DRUGS (2)
  1. DUPIXENT [Suspect]
     Active Substance: DUPILUMAB
     Indication: Dermatitis atopic
     Route: 058
     Dates: start: 20250505, end: 20250505
  2. DUPIXENT [Suspect]
     Active Substance: DUPILUMAB
     Dosage: 300 MG, QOW
     Route: 058
     Dates: start: 202505

REACTIONS (2)
  - Pruritus [Unknown]
  - Extra dose administered [Unknown]

NARRATIVE: CASE EVENT DATE: 20250501
